FAERS Safety Report 6139832-0 (Version None)
Quarter: 2009Q1

REPORT INFORMATION
  Report Type: 
  Country: None (occurrence: None)
  Receive Date: 20090330
  Receipt Date: 20090330
  Transmission Date: 20090719
  Serious: Yes (Disabling)
  Sender: FDA-Public Use
  Company Number: None

PATIENT
  Sex: Female
  Weight: 88.18 kg

DRUGS (2)
  1. LISINOPRIL [Suspect]
     Dosage: 5MG TABLET 5 MG QD ORAL
     Route: 048
     Dates: start: 20090325, end: 20090330
  2. ZOLOFT [Concomitant]

REACTIONS (1)
  - INSOMNIA [None]
